FAERS Safety Report 19880431 (Version 4)
Quarter: 2024Q4

REPORT INFORMATION
  Report Type: Spontaneous
  Country: US (occurrence: US)
  Receive Date: 20210924
  Receipt Date: 20241015
  Transmission Date: 20250115
  Serious: No
  Sender: CELLTRION
  Company Number: US-CELLTRION INC.-2021US003803

PATIENT

DRUGS (2)
  1. INFLECTRA [Suspect]
     Active Substance: INFLIXIMAB-DYYB
     Indication: Colitis ulcerative
     Dosage: UNK
     Route: 065
  2. INFLECTRA [Suspect]
     Active Substance: INFLIXIMAB-DYYB
     Indication: Colon cancer
     Dosage: UNKNOWN STRENGTH AND ADMINISTERED EVERY 8 WEEKS
     Route: 065

REACTIONS (16)
  - Blood iron abnormal [Recovered/Resolved]
  - Impaired quality of life [Unknown]
  - Asthenia [Unknown]
  - Dizziness [Unknown]
  - Headache [Not Recovered/Not Resolved]
  - Influenza like illness [Recovering/Resolving]
  - Nervousness [Unknown]
  - Constipation [Unknown]
  - Diarrhoea [Unknown]
  - Fatigue [Unknown]
  - Insomnia [Unknown]
  - Intentional product use issue [Unknown]
  - Intentional product use issue [Unknown]
  - Insurance issue [Unknown]
  - Therapy interrupted [Unknown]
  - Drug ineffective [Unknown]

NARRATIVE: CASE EVENT DATE: 20230411
